FAERS Safety Report 6253156-2 (Version None)
Quarter: 2009Q2

REPORT INFORMATION
  Report Type: 
  Country: None (occurrence: None)
  Receive Date: 20090629
  Receipt Date: 20090629
  Transmission Date: 20091009
  Serious: Yes (Life-Threatening)
  Sender: FDA-Public Use
  Company Number: None

PATIENT
  Age: 9 Year
  Sex: Female
  Weight: 23.587 kg

DRUGS (1)
  1. STINGEZE BENZOCAINE 5% [Suspect]
     Indication: PRURITUS
     Dates: start: 20090618, end: 20090618

REACTIONS (5)
  - DIZZINESS [None]
  - EYE ROLLING [None]
  - HYPOAESTHESIA [None]
  - SKIN DISCOLOURATION [None]
  - SYNCOPE [None]
